FAERS Safety Report 8120702-3 (Version None)
Quarter: 2012Q1

REPORT INFORMATION
  Report Type: 
  Country: None (occurrence: None)
  Receive Date: 20120207
  Receipt Date: 20120130
  Transmission Date: 20120608
  Serious: Yes (Hospitalization)
  Sender: FDA-Public Use
  Company Number: US-BAYER-2011-087460

PATIENT
  Age: 18 Year
  Sex: Female
  Weight: 53.515 kg

DRUGS (3)
  1. YAZ [Suspect]
     Dosage: UNK
     Route: 048
     Dates: start: 20010101, end: 20031201
  2. YASMIN [Suspect]
     Dosage: UNK
     Route: 048
     Dates: start: 20010101, end: 20031201
  3. ORTHO TRI-CYCLEN [Concomitant]

REACTIONS (7)
  - GALLBLADDER POLYP [None]
  - CHOLECYSTECTOMY [None]
  - ASTHENIA [None]
  - INJURY [None]
  - PAIN [None]
  - EMOTIONAL DISTRESS [None]
  - DIZZINESS [None]
